FAERS Safety Report 14298550 (Version 13)
Quarter: 2020Q1

REPORT INFORMATION
  Report Type: Spontaneous
  Country: US (occurrence: US)
  Receive Date: 20171218
  Receipt Date: 20200319
  Transmission Date: 20200409
  Serious: Yes (Hospitalization)
  Sender: FDA-Public Use
  Company Number: US-ACTELION-A-NJ2017-164334

PATIENT
  Age: 26 Year
  Sex: Male

DRUGS (8)
  1. ADCIRCA [Concomitant]
     Active Substance: TADALAFIL
  2. VELETRI [Suspect]
     Active Substance: EPOPROSTENOL
     Dosage: 43 NG/KG, PER MIN
     Route: 042
  3. VELETRI [Suspect]
     Active Substance: EPOPROSTENOL
     Dosage: 4 NG/KG, PER MIN
     Route: 042
  4. OPSUMIT [Suspect]
     Active Substance: MACITENTAN
     Indication: PULMONARY ARTERIAL HYPERTENSION
     Dosage: 10 MG, QD
     Route: 048
     Dates: start: 201605
  5. VELETRI [Suspect]
     Active Substance: EPOPROSTENOL
     Indication: PULMONARY ARTERIAL HYPERTENSION
     Dosage: 42.5 NG/KG, PER MIN
     Route: 042
     Dates: start: 20171207
  6. VELETRI [Suspect]
     Active Substance: EPOPROSTENOL
     Dosage: 29.5 NG/KG, PER MIN
     Route: 042
     Dates: start: 20171207
  7. VELETRI [Suspect]
     Active Substance: EPOPROSTENOL
     Dosage: 50 NG/KG, PER MIN
     Route: 042
     Dates: start: 201806
  8. VELETRI [Suspect]
     Active Substance: EPOPROSTENOL
     Dosage: 40.5 NG/KG, PER MIN
     Route: 042
     Dates: start: 201806

REACTIONS (12)
  - Device related sepsis [Recovering/Resolving]
  - Headache [Unknown]
  - Fatigue [Unknown]
  - Photophobia [Unknown]
  - Vomiting [Unknown]
  - Complication associated with device [Unknown]
  - Nausea [Unknown]
  - Cardiac failure [Not Recovered/Not Resolved]
  - Device dislocation [Unknown]
  - Catheter management [Recovering/Resolving]
  - Hospitalisation [Unknown]
  - Diarrhoea [Unknown]

NARRATIVE: CASE EVENT DATE: 20190216
